FAERS Safety Report 16839837 (Version 2)
Quarter: 2019Q3

REPORT INFORMATION
  Report Type: Report from Study
  Country: IT (occurrence: IT)
  Receive Date: 20190923
  Receipt Date: 20190930
  Transmission Date: 20191005
  Serious: Yes (Hospitalization, Other)
  Sender: FDA-Public Use
  Company Number: IT-PFIZER INC-2019402382

PATIENT
  Age: 38 Year
  Sex: Male

DRUGS (4)
  1. CIPROFLOXACIN. [Suspect]
     Active Substance: CIPROFLOXACIN
     Indication: SINUSITIS
     Dosage: UNK
  2. PARACETAMOL [Suspect]
     Active Substance: ACETAMINOPHEN
     Indication: SINUSITIS
     Dosage: UNK
  3. NORAMIDOPYRINE [Suspect]
     Active Substance: NORAMIDOPYRINE
     Indication: SINUSITIS
     Dosage: UNK
  4. ALPRAZOLAM. [Suspect]
     Active Substance: ALPRAZOLAM
     Indication: SINUSITIS
     Dosage: UNK

REACTIONS (1)
  - No adverse event [Recovered/Resolved]
